FAERS Safety Report 8028102-1 (Version None)
Quarter: 2012Q1

REPORT INFORMATION
  Report Type: 
  Country: None (occurrence: None)
  Receive Date: 20120106
  Receipt Date: 20120103
  Transmission Date: 20120608
  Serious: Yes (Hospitalization, Disabling)
  Sender: FDA-Public Use
  Company Number: MX-ROCHE-1020661

PATIENT
  Sex: Female
  Weight: 66 kg

DRUGS (8)
  1. ASPIRIN [Concomitant]
     Route: 048
     Dates: start: 20080101
  2. DAFLON (MEXICO) [Concomitant]
     Indication: VARICOSE VEIN
     Route: 048
     Dates: start: 20060101
  3. FABROVEN [Concomitant]
     Indication: VARICOSE VEIN
  4. LOSARTAN POTASSIUM [Concomitant]
     Indication: HYPERTENSION
     Route: 048
     Dates: start: 20060101
  5. PEGINTERFERON ALFA-2A [Suspect]
     Indication: HEPATITIS C
     Route: 058
     Dates: start: 20110729
  6. COPEGUS [Suspect]
     Indication: HEPATITIS C
     Route: 048
     Dates: start: 20110729
  7. FABROVEN [Concomitant]
     Indication: OEDEMA PERIPHERAL
     Dosage: 2 CAPSULES EVERY 24 HOURS.
     Route: 048
     Dates: start: 20060101
  8. GLYVENOL [Concomitant]
     Indication: VARICOSE VEIN
     Route: 048

REACTIONS (16)
  - TACHYCARDIA [None]
  - FATIGUE [None]
  - NAUSEA [None]
  - VARICOSE VEIN [None]
  - MUSCLE SPASMS [None]
  - INFLUENZA [None]
  - EYE INFLAMMATION [None]
  - PARAESTHESIA [None]
  - MUSCULOSKELETAL PAIN [None]
  - HYPERTENSION [None]
  - OEDEMA PERIPHERAL [None]
  - PYREXIA [None]
  - DYSPNOEA [None]
  - ANAEMIA [None]
  - HAEMORRHOIDS [None]
  - HAEMOPTYSIS [None]
